FAERS Safety Report 5018298-8 (Version None)
Quarter: 2006Q2

REPORT INFORMATION
  Report Type: 
  Country: None (occurrence: None)
  Receive Date: 20060530
  Receipt Date: 20060519
  Transmission Date: 20061013
  Serious: Yes (Hospitalization)
  Sender: FDA-Public Use
  Company Number: 2006-04-2075

PATIENT
  Age: 53 Year
  Sex: Female

DRUGS (2)
  1. VIRAFERONPEG (PEG INTERFERON ALFA-2B RECOMBINANT) INJECTABLE [Suspect]
  2. RIBAVIRIN [Suspect]

REACTIONS (9)
  - BURNING SENSATION [None]
  - DYSAESTHESIA [None]
  - FEELING COLD [None]
  - HYPERAESTHESIA [None]
  - MEAN CELL VOLUME INCREASED [None]
  - NEUROPATHY [None]
  - OEDEMA PERIPHERAL [None]
  - PORPHYRIA NON-ACUTE [None]
  - RED BLOOD CELL SEDIMENTATION RATE INCREASED [None]
